FAERS Safety Report 18443102 (Version 1)
Quarter: 2020Q4

REPORT INFORMATION
  Report Type: Spontaneous
  Country: ES (occurrence: ES)
  Receive Date: 20201029
  Receipt Date: 20201029
  Transmission Date: 20210114
  Serious: Yes (Other)
  Sender: FDA-Public Use
  Company Number: NVSC2020ES287715

PATIENT
  Age: 3 Year
  Sex: Male
  Weight: 9.6 kg

DRUGS (2)
  1. AMOXICILLIN, CLAVULANIC ACID [Suspect]
     Active Substance: AMOXICILLIN\CLAVULANIC ACID
     Indication: RESPIRATORY TRACT INFECTION
     Dosage: 2.5 ML, Q8H (250MG/8H)
     Route: 048
     Dates: start: 20200109, end: 20200116
  2. PARACETAMOL [Suspect]
     Active Substance: ACETAMINOPHEN
     Indication: RESPIRATORY TRACT INFECTION
     Dosage: 100 MG, Q8H (100MG/6-8H)
     Route: 048
     Dates: start: 20200109

REACTIONS (1)
  - Hepatitis [Recovered/Resolved]

NARRATIVE: CASE EVENT DATE: 20200111
